FAERS Safety Report 10010825 (Version 3)
Quarter: 2014Q1

REPORT INFORMATION
  Report Type: Spontaneous
  Country: DE (occurrence: None)
  Receive Date: 20140311
  Receipt Date: 20140320
  Transmission Date: 20141002
  Serious: Yes (Other)
  Sender: FDA-Public Use
  Company Number: AUR-APL-2014-02563

PATIENT
  Age: 32 Year
  Sex: Female
  Weight: 128 kg

DRUGS (5)
  1. RAMIPRIL [Suspect]
     Indication: HYPERTENSION
     Dosage: 5 MG (5 MG, 1 IN 1 D), ORAL
     Route: 048
     Dates: start: 20121010, end: 20121015
  2. EDARBI (AZILSARTAN MEDOXOMIL) [Suspect]
     Indication: HYPERTENSION
     Dosage: 20 MG (20 MG, 1 IN 1 D), ORAL
     Route: 048
     Dates: start: 20120607, end: 20121119
  3. METHYLDOPA (METHYLDOPA) [Concomitant]
  4. INFLUSPLIT SSW (INFLUENZA VACCINE) [Concomitant]
  5. FOLIO FORTE (FOLIC ACID W/ POTASSIUM IODINE/VITAMIN B12 NOS) [Concomitant]

REACTIONS (6)
  - Oligohydramnios [None]
  - Premature rupture of membranes [None]
  - Caesarean section [None]
  - Obstructed labour [None]
  - Gestational diabetes [None]
  - Maternal exposure during pregnancy [None]
